FAERS Safety Report 21300442 (Version 1)
Quarter: 2022Q3

REPORT INFORMATION
  Report Type: Other
  Country: DE (occurrence: DE)
  Receive Date: 20220907
  Receipt Date: 20220907
  Transmission Date: 20221027
  Serious: Yes (Hospitalization, Disabling)
  Sender: FDA-Public Use
  Company Number: DE-MACLEODS PHARMACEUTICALS US LTD-MAC2022037060

PATIENT

DRUGS (23)
  1. PANTOPRAZOLE SODIUM [Suspect]
     Active Substance: PANTOPRAZOLE SODIUM
     Indication: Retinal artery occlusion
     Dosage: 40 MILLIGRAM, QD
     Route: 048
  2. ASPIRIN [Suspect]
     Active Substance: ASPIRIN
     Indication: Retinal artery occlusion
     Dosage: 100 MILLIGRAM, QD
     Route: 048
  3. CLINDAMYCIN PHOSPHATE [Suspect]
     Active Substance: CLINDAMYCIN PHOSPHATE
     Indication: Retinal artery occlusion
     Dosage: 300 MILLIGRAM, QID (300 MG, 0.25 D)
     Route: 048
  4. METHYLPREDNISOLONE [Suspect]
     Active Substance: METHYLPREDNISOLONE
     Indication: Retinal artery occlusion
     Dosage: 100 MILLIGRAM, QD
     Route: 042
  5. OFLOXACIN [Suspect]
     Active Substance: OFLOXACIN
     Indication: Retinal artery occlusion
     Dosage: 3 MG/G, QID (3 MILLIGRAM PER GRAM, 0.25 D)
  6. OFLOXACIN [Suspect]
     Active Substance: OFLOXACIN
     Dosage: 9 MG/G, QID (3 MILLIGRAM PER GRAM DOSE REDUCED, TID)
  7. PREDNISOLONE [Suspect]
     Active Substance: PREDNISOLONE
     Indication: Retinal artery occlusion
     Dosage: UNK UNK, QD (10 MG/ML, BID (DOSE REDUCED))
  8. PREDNISOLONE [Suspect]
     Active Substance: PREDNISOLONE
     Dosage: UNK UNK, QD (10 MG/ML,  TID)
  9. PREDNISOLONE [Suspect]
     Active Substance: PREDNISOLONE
     Dosage: UNK UNK, QD (10 MG/ML, QD)
  10. ATROPINE [Suspect]
     Active Substance: ATROPINE
     Indication: Retinal artery occlusion
     Dosage: UNK QD (DOSE REDUCED)
  11. ATROPINE [Suspect]
     Active Substance: ATROPINE
     Dosage: UNK UNK, BID
  12. DEXPANTHENOL [Suspect]
     Active Substance: DEXPANTHENOL
     Indication: Retinal artery occlusion
     Dosage: UNK UNK, QID (0.25 D)
  13. DEXPANTHENOL [Suspect]
     Active Substance: DEXPANTHENOL
     Dosage: DOSE REDUCED (6 TIMES DAILY)
  14. DEXPANTHENOL [Suspect]
     Active Substance: DEXPANTHENOL
     Dosage: 2 HOURS, DOSE INCREASED
  15. HYALURONIC ACID [Suspect]
     Active Substance: HYALURONIC ACID
     Indication: Dermal filler injection
     Dosage: 0.7 ML, GLABELLAR INJECTION
     Route: 065
  16. PREDNISONE [Suspect]
     Active Substance: PREDNISONE
     Indication: Retinal artery occlusion
     Dosage: 90 MILLIGRAM
     Route: 048
  17. PREDNISONE [Suspect]
     Active Substance: PREDNISONE
     Dosage: 5 MG, QD (FOR TWO WEEKS)
     Route: 048
  18. PREDNISONE [Suspect]
     Active Substance: PREDNISONE
     Dosage: 50 MG, QD (REDUCED)
     Route: 048
  19. PREDNISONE [Suspect]
     Active Substance: PREDNISONE
     Dosage: 60 MILLIGRAM, QD
     Route: 048
  20. PREDNISONE [Suspect]
     Active Substance: PREDNISONE
     Dosage: 10 MG (FURTHER REDUCTION OF 10 MG EVERY THREE DAYS, REMAINING ON 10 MG)
     Route: 048
  21. TINZAPARIN SODIUM [Suspect]
     Active Substance: TINZAPARIN SODIUM
     Indication: Retinal artery occlusion
     Dosage: UNK (4.500IE)
     Route: 058
  22. SEA WATER [Concomitant]
     Active Substance: SEA WATER
     Indication: Product used for unknown indication
     Dosage: UNK
     Route: 045
  23. DEXAMETHASONE [Concomitant]
     Active Substance: DEXAMETHASONE
     Indication: Product used for unknown indication
     Dosage: UNK UNK, QD (1 MG/ML, QD)

REACTIONS (10)
  - Madarosis [Not Recovered/Not Resolved]
  - Blindness [Not Recovered/Not Resolved]
  - Lagophthalmos [Not Recovered/Not Resolved]
  - Hypotonia [Not Recovered/Not Resolved]
  - Skin lesion [Not Recovered/Not Resolved]
  - Retinal degeneration [Not Recovered/Not Resolved]
  - Strabismus [Not Recovered/Not Resolved]
  - Anterior segment ischaemia [Not Recovered/Not Resolved]
  - Drug ineffective [Unknown]
  - Off label use [Unknown]
